FAERS Safety Report 5134176-8 (Version None)
Quarter: 2006Q4

REPORT INFORMATION
  Report Type: 
  Country: None (occurrence: None)
  Receive Date: 20061024
  Receipt Date: 20060926
  Transmission Date: 20070319
  Serious: Yes (Other)
  Sender: FDA-Public Use
  Company Number: JP-BAYER-200611080BYL

PATIENT
  Age: 75 Year
  Sex: Female

DRUGS (7)
  1. AVELOX [Suspect]
     Indication: ENTERITIS INFECTIOUS
     Dosage: TOTAL DAILY DOSE: 400 MG  UNIT DOSE: 400 MG
     Route: 048
     Dates: start: 20060905, end: 20060915
  2. BIOFERMIN R [Suspect]
     Indication: ENTERITIS INFECTIOUS
     Route: 048
     Dates: start: 20060905
  3. LIVACT [Concomitant]
     Dosage: TOTAL DAILY DOSE: 12.45 G  UNIT DOSE: 4.15 G
     Route: 048
  4. LASIX [Concomitant]
     Indication: DIURETIC THERAPY
     Route: 048
  5. CYANOCOBALAMIN [Concomitant]
     Dosage: TOTAL DAILY DOSE: 1500 ?G  UNIT DOSE: 500 ?G
     Route: 048
  6. ALFAROL [Concomitant]
     Dosage: TOTAL DAILY DOSE: 60 ML
     Route: 048
  7. ALLOID G [Concomitant]
     Dosage: TOTAL DAILY DOSE: 60 ML
     Route: 048

REACTIONS (2)
  - ENTEROCOLITIS HAEMORRHAGIC [None]
  - PSEUDOMEMBRANOUS COLITIS [None]
